FAERS Safety Report 9845572 (Version 1)
Quarter: 2014Q1

REPORT INFORMATION
  Report Type: Spontaneous
  Country: US (occurrence: US)
  Receive Date: 20140127
  Receipt Date: 20140127
  Transmission Date: 20141002
  Serious: No
  Sender: FDA-Public Use
  Company Number: US-009507513-1401USA007523

PATIENT
  Age: 59 Year
  Sex: Female

DRUGS (3)
  1. REBETOL [Suspect]
     Indication: HEPATITIS C
     Dosage: 1 PILL TWICE A DAY
     Route: 048
     Dates: start: 20131122
  2. VICTRELIS [Suspect]
     Indication: HEPATITIS C
     Dosage: 4 PILLS EVERY 7 TO 9 HOURS
     Route: 048
     Dates: start: 20131222
  3. PEGASYS [Suspect]
     Indication: HEPATITIS C
     Dosage: 180 MICROGRAM ONCE A WEEK
     Route: 058
     Dates: start: 20131122

REACTIONS (4)
  - Sinusitis [Unknown]
  - Epistaxis [Unknown]
  - Thrombocytopenia [Unknown]
  - Platelet count decreased [Unknown]
